FAERS Safety Report 23315873 (Version 2)
Quarter: 2024Q1

REPORT INFORMATION
  Report Type: Report from Study
  Country: CN (occurrence: CN)
  Receive Date: 20231219
  Receipt Date: 20240117
  Transmission Date: 20240409
  Serious: No
  Sender: FDA-Public Use
  Company Number: CN-PFIZER INC-PV202300202897

PATIENT
  Age: 86 Year
  Sex: Male

DRUGS (32)
  1. NIRMATRELVIR\RITONAVIR [Suspect]
     Active Substance: NIRMATRELVIR\RITONAVIR
     Indication: COVID-19
     Dosage: [NIRMATRELVIR 300MG]/[RITONAVIR 100 MG], 2X/DAY, PC
     Dates: start: 20220501, end: 20220506
  2. NIRMATRELVIR\RITONAVIR [Suspect]
     Active Substance: NIRMATRELVIR\RITONAVIR
     Dosage: UNK, 2X/DAY
     Dates: start: 20220512, end: 20220517
  3. AMLODIPINE BESYLATE [Concomitant]
     Active Substance: AMLODIPINE BESYLATE
     Indication: Hypertension
     Dosage: UNK
     Route: 048
     Dates: start: 20220430, end: 20220518
  4. BENSERAZIDE\LEVODOPA [Concomitant]
     Active Substance: BENSERAZIDE\LEVODOPA
     Indication: Anticoagulant therapy
     Dosage: UNK
     Route: 048
     Dates: start: 20220430, end: 20220518
  5. RABEPRAZOLE SODIUM [Concomitant]
     Active Substance: RABEPRAZOLE SODIUM
     Indication: Prophylaxis
     Dosage: ENTERIC CAPSULES
     Route: 048
     Dates: start: 20220430, end: 20220510
  6. RABEPRAZOLE SODIUM [Concomitant]
     Active Substance: RABEPRAZOLE SODIUM
     Dosage: ENTERIC CAPSULES
     Route: 048
     Dates: start: 20220501, end: 20220511
  7. ACETYLCYSTEINE [Concomitant]
     Active Substance: ACETYLCYSTEINE
     Indication: Productive cough
     Dosage: UNK
     Route: 048
     Dates: start: 20220430, end: 20220511
  8. AMINOPHYLLINE\CHLORPHENIRAMINE MALEATE\METHOXYPHENAMINE HYDROCHLORIDE\ [Concomitant]
     Active Substance: AMINOPHYLLINE\CHLORPHENIRAMINE MALEATE\METHOXYPHENAMINE HYDROCHLORIDE\NOSCAPINE
     Indication: Cough
     Dosage: UNK
     Route: 048
     Dates: start: 20220430, end: 20220501
  9. AMINOPHYLLINE\CHLORPHENIRAMINE MALEATE\METHOXYPHENAMINE HYDROCHLORIDE\ [Concomitant]
     Active Substance: AMINOPHYLLINE\CHLORPHENIRAMINE MALEATE\METHOXYPHENAMINE HYDROCHLORIDE\NOSCAPINE
     Indication: Asthma
     Dosage: UNK
     Route: 048
     Dates: start: 20220501, end: 20220511
  10. FERROUS SUCCINATE [Concomitant]
     Active Substance: FERROUS SUCCINATE
     Indication: Mineral supplementation
     Dosage: SUSTAINED RELEASE TABLETS
     Route: 048
     Dates: start: 20220501, end: 20220501
  11. FERROUS SUCCINATE [Concomitant]
     Active Substance: FERROUS SUCCINATE
     Dosage: SUSTAINED RELEASE TABLETS
     Route: 048
     Dates: start: 20220511, end: 20220518
  12. HEPARIN SODIUM [Concomitant]
     Active Substance: HEPARIN SODIUM
     Indication: Anticoagulant therapy
     Dosage: UNK
     Route: 058
     Dates: start: 20220502, end: 20220504
  13. ENTERAL NUTRITIONAL SUSPENSION (TPF) [Concomitant]
     Indication: Nutritional supplementation
     Dosage: NASOGASTRIC
     Route: 045
     Dates: start: 20220503, end: 20220504
  14. ENTERAL NUTRITIONAL SUSPENSION (TPF) [Concomitant]
     Dosage: NASOGASTRIC
     Route: 045
     Dates: start: 20220504, end: 20220511
  15. ENTERAL NUTRITIONAL SUSPENSION (TPF) [Concomitant]
     Dosage: NASOGASTRIC
     Route: 045
     Dates: start: 20220511, end: 20220518
  16. ENOXAPARIN SODIUM [Concomitant]
     Active Substance: ENOXAPARIN SODIUM
     Indication: Anticoagulant therapy
     Dosage: UNK
     Route: 058
     Dates: start: 20220504, end: 20220511
  17. ENOXAPARIN SODIUM [Concomitant]
     Active Substance: ENOXAPARIN SODIUM
     Dosage: UNK
     Route: 058
     Dates: start: 20220511, end: 20220518
  18. OXYGEN [Concomitant]
     Active Substance: OXYGEN
     Indication: Hypoxia
     Dosage: UNK
     Route: 055
     Dates: start: 20220505, end: 20220511
  19. THYMALFASIN [Concomitant]
     Active Substance: THYMALFASIN
     Indication: Immunomodulatory therapy
     Dosage: UNK
     Route: 058
     Dates: start: 20220508, end: 20220511
  20. BUDESONIDE [Concomitant]
     Active Substance: BUDESONIDE
     Indication: Asthma prophylaxis
     Dosage: SUSPERSION FOR INHALATION
     Route: 055
     Dates: start: 20220511, end: 20220511
  21. AMBROXOL HYDROCHLORIDE [Concomitant]
     Active Substance: AMBROXOL HYDROCHLORIDE
     Indication: Productive cough
     Dosage: UNK
     Route: 042
     Dates: start: 20220511, end: 20220518
  22. CEFEPIME HYDROCHLORIDE [Concomitant]
     Active Substance: CEFEPIME HYDROCHLORIDE
     Indication: Prophylaxis
     Dosage: UNK
     Route: 042
     Dates: start: 20220515, end: 20220518
  23. NIRMATRELVIR [Concomitant]
     Active Substance: NIRMATRELVIR
     Indication: COVID-19
     Dosage: UNK
     Route: 048
     Dates: start: 20220501, end: 20220501
  24. NIRMATRELVIR [Concomitant]
     Active Substance: NIRMATRELVIR
     Dosage: UNK
     Route: 048
     Dates: start: 20220501, end: 20220511
  25. RITONAVIR [Concomitant]
     Active Substance: RITONAVIR
     Indication: COVID-19
     Dosage: UNK
     Route: 048
     Dates: start: 20220501, end: 20220501
  26. RITONAVIR [Concomitant]
     Active Substance: RITONAVIR
     Dosage: UNK
     Route: 048
     Dates: start: 20220501, end: 20220511
  27. NIRMATRELVIR\RITONAVIR [Concomitant]
     Active Substance: NIRMATRELVIR\RITONAVIR
     Indication: COVID-19
     Dosage: CO-PACKAGED
     Route: 048
     Dates: start: 20220512, end: 20220518
  28. HERBALS [Concomitant]
     Active Substance: HERBALS
     Indication: Antiviral treatment
     Dosage: UNK
     Route: 048
     Dates: start: 20220430
  29. HERBALS\MENTHOL [Concomitant]
     Active Substance: HERBALS\MENTHOL
     Indication: Antiviral treatment
     Dosage: UNK
     Route: 048
     Dates: start: 20220430
  30. MOMETASONE FUROATE [Concomitant]
     Active Substance: MOMETASONE FUROATE
     Indication: Pruritus
     Dosage: UNK
     Route: 061
     Dates: start: 20220516
  31. NITROGLYCERIN [Concomitant]
     Active Substance: NITROGLYCERIN
     Indication: Coronary artery dilatation
     Dosage: UNK
     Route: 050
     Dates: start: 20220504
  32. TAN RE QING [Concomitant]
     Indication: Antiviral prophylaxis
     Dosage: UNK
     Route: 042
     Dates: start: 20220511, end: 20220518

REACTIONS (1)
  - Overdose [Unknown]
